FAERS Safety Report 6571891-3 (Version None)
Quarter: 2010Q1

REPORT INFORMATION
  Report Type: 
  Country: None (occurrence: None)
  Receive Date: 20100205
  Receipt Date: 20100125
  Transmission Date: 20100710
  Serious: Yes (Life-Threatening, Hospitalization)
  Sender: FDA-Public Use
  Company Number: DE-ROCHE-644669

PATIENT
  Age: 84 Year
  Sex: Female

DRUGS (21)
  1. ROCEPHIN [Suspect]
     Indication: PNEUMONIA
     Dosage: ROUTE: INTRAVENOUS (NOS)
     Route: 042
     Dates: start: 20090326, end: 20090406
  2. RULID [Suspect]
     Indication: PNEUMONIA
     Dosage: NO.OF SEPARATE DOSES: 1; FORM:FILM COATED TABLET
     Route: 048
     Dates: start: 20090326, end: 20090406
  3. ZIENAM [Suspect]
     Dosage: ROUTE: INTRAVENOUS (NOS); FORM: POWDER FOR INJECTION; NO.OF SEPARATE DOSAGES: 3
     Route: 042
     Dates: start: 20090414, end: 20090416
  4. PANTOZOL [Suspect]
     Dosage: GASTRO RESISTANT TABLET; NO.OF SEPARATE DOSES: 1
     Route: 048
     Dates: start: 20041001
  5. PREDNISOLON [Suspect]
     Dosage: NO.OF SEPARATE DOSES: 1
     Route: 048
     Dates: start: 20090326, end: 20090406
  6. ACTRAPID [Concomitant]
     Indication: DIABETES MELLITUS
     Dosage: DOSE REPORTED AS 12/4/8 IU; NO. OF SEPERATE DOSES: 3; DRUG REPORTED AS ACTRAPID HUMAN
     Route: 058
     Dates: start: 20080301
  7. ASPIRIN [Concomitant]
     Dosage: NO.OF SEPARATE DOSES: 1
     Route: 048
     Dates: start: 19930101
  8. CALCIUM [Concomitant]
     Dosage: NO.OF SEPARATE DOSES: 1; EFFERVESCENT TABLET
     Route: 048
  9. CARMEN [Concomitant]
     Dosage: NO.OF SEPARATE DOSES: 2; FILM COATED TABLET
     Route: 048
     Dates: start: 20041001
  10. CARVEDILOL [Concomitant]
     Dosage: NO.OF SEPARATE DOSES: 2
     Route: 048
     Dates: start: 19950101
  11. LANTUS [Concomitant]
     Indication: DIABETES MELLITUS
     Dosage: FORM: POWDER FOR INJECTION; NO.OF SEPARATE DOSES: 1
     Route: 058
     Dates: start: 20090501
  12. METRONIDAZOLE [Concomitant]
     Dosage: NO.OF SEPARATE DOSES: 3
     Route: 048
     Dates: start: 20090425, end: 20090502
  13. MOXONIDINE [Concomitant]
     Dosage: FILM COATED TABLET; NO.OF SEPARATE DOSES: 1
     Route: 048
     Dates: start: 20070720
  14. RAMIPRIL [Concomitant]
     Dosage: NO.OF SEPARATE DOSES: 2
     Route: 048
     Dates: start: 20070701, end: 20090501
  15. SIMETHICONE [Concomitant]
     Dosage: CHEWABLE TABLET
     Route: 048
     Dates: start: 20090406, end: 20090414
  16. SIMVASTATIN [Concomitant]
     Indication: HYPERLIPIDAEMIA
     Dosage: NO.OF SEPARATE DOSES: 1
     Route: 048
     Dates: start: 20070701
  17. SPIRIVA [Concomitant]
     Dosage: FORM: INHALATION POWDER, HARD CAPSULE; NO.OF SEPARATE DOSES: 1
     Route: 055
     Dates: start: 20090101
  18. SPIRONOLACTONE [Concomitant]
     Dosage: NO.OF SEPARATE DOSES: 1
     Route: 048
     Dates: start: 20041001, end: 20090507
  19. TOREM [Concomitant]
     Dosage: NO.OF SEPARATE DOSES: 1
     Route: 048
     Dates: start: 20080701, end: 20090407
  20. XIPAMIDE [Concomitant]
     Dosage: NO.OF SEPARATE DOSES: 1
     Route: 048
     Dates: start: 20090326, end: 20090414
  21. SYMBICORT [Concomitant]
     Dosage: 160 MG BUDESONIDE + 4.5 MG FORMOTEROL;  1 DOSE FORM: NO. OF SEPERATE DOSAGES: 2
     Route: 055
     Dates: start: 20080701

REACTIONS (1)
  - CLOSTRIDIUM DIFFICILE COLITIS [None]
